FAERS Safety Report 9293865 (Version 1)
Quarter: 2013Q1

REPORT INFORMATION
  Report Type: Spontaneous
  Country: US (occurrence: None)
  Receive Date: 20121217
  Receipt Date: 20121217
  Transmission Date: 20140127
  Serious: Yes (Other)
  Sender: FDA-Public Use
  Company Number: 068027

PATIENT
  Age: 68 Year
  Sex: Female

DRUGS (3)
  1. ROTIGOTINE [Suspect]
     Indication: PARKINSON^S DISEASE
     Dosage: ( TO NOT CONTINUING)
  2. REQUIP [Concomitant]
  3. SINEMET [Concomitant]

REACTIONS (2)
  - Dysphagia [None]
  - Lip swelling [None]
